FAERS Safety Report 19714432 (Version 1)
Quarter: 2021Q3

REPORT INFORMATION
  Report Type: Spontaneous
  Country: US (occurrence: US)
  Receive Date: 20210818
  Receipt Date: 20210818
  Transmission Date: 20211014
  Serious: Yes (Other)
  Sender: FDA-Public Use
  Company Number: US-ROCHE-2866603

PATIENT
  Sex: Female

DRUGS (1)
  1. GAVRETO [Suspect]
     Active Substance: PRALSETINIB
     Indication: PANCREATIC CARCINOMA
     Route: 048
     Dates: start: 20210629, end: 20210703

REACTIONS (5)
  - Oral candidiasis [Recovered/Resolved]
  - Headache [Unknown]
  - Off label use [Unknown]
  - Vision blurred [Unknown]
  - Dysphagia [Recovered/Resolved]

NARRATIVE: CASE EVENT DATE: 20210703
